FAERS Safety Report 10154711 (Version 1)
Quarter: 2014Q2

REPORT INFORMATION
  Report Type: Spontaneous
  Country: US (occurrence: US)
  Receive Date: 20140506
  Receipt Date: 20140506
  Transmission Date: 20141212
  Serious: Yes (Disabling, Other)
  Sender: FDA-Public Use
  Company Number: US-BAYER-2014-065641

PATIENT
  Age: 40 Year
  Sex: Female

DRUGS (3)
  1. YASMIN [Suspect]
     Dosage: UNK
     Dates: start: 20020329, end: 2007
  2. YASMIN [Suspect]
     Dosage: UNK
     Dates: start: 20020329
  3. YAZ [Suspect]

REACTIONS (9)
  - Intracardiac thrombus [None]
  - Thrombosis [None]
  - Phlebitis superficial [Recovered/Resolved]
  - Pain [None]
  - Injury [None]
  - Emotional distress [None]
  - Pain [None]
  - Anxiety [None]
  - Fear of disease [None]
